FAERS Safety Report 9687934 (Version 1)
Quarter: 2013Q4

REPORT INFORMATION
  Report Type: Spontaneous
  Country: US (occurrence: None)
  Receive Date: 20131113
  Receipt Date: 20131113
  Transmission Date: 20140711
  Serious: Yes (Death)
  Sender: FDA-Public Use
  Company Number: None

PATIENT
  Age: 59 Year
  Sex: Female

DRUGS (1)
  1. TARCEVA [Suspect]
     Dosage: 150MG ONCE DAILY PO
     Route: 048
     Dates: start: 20130723

REACTIONS (2)
  - Disease progression [None]
  - Unevaluable event [None]
